FAERS Safety Report 6897843-1 (Version None)
Quarter: 2010Q3

REPORT INFORMATION
  Report Type: 
  Country: None (occurrence: None)
  Receive Date: 20100802
  Receipt Date: 20070828
  Transmission Date: 20110219
  Serious: No
  Sender: FDA-Public Use
  Company Number: US-PFIZER INC-2007045142

PATIENT
  Sex: Female
  Weight: 47.63 kg

DRUGS (7)
  1. LYRICA [Suspect]
     Indication: SPINAL CORD INJURY
     Dates: start: 20061201
  2. AMITRIPTYLINE HYDROCHLORIDE [Concomitant]
  3. OXYCODONE [Concomitant]
  4. HYDROCHLOROTHIAZIDE [Concomitant]
  5. VITAMIN D [Concomitant]
  6. CENTRUM SILVER [Concomitant]
  7. TYLENOL [Concomitant]

REACTIONS (3)
  - MENTAL IMPAIRMENT [None]
  - VITAMIN D DECREASED [None]
  - WEIGHT INCREASED [None]
